FAERS Safety Report 7486746-X (Version None)
Quarter: 2011Q2

REPORT INFORMATION
  Report Type: 
  Country: None (occurrence: None)
  Receive Date: 20110517
  Receipt Date: 20100916
  Transmission Date: 20111010
  Serious: No
  Sender: FDA-Public Use
  Company Number: US-NOVEN-ALL1-2010-04915

PATIENT
  Sex: Male
  Weight: 74.83 kg

DRUGS (2)
  1. DEPAKOTE [Concomitant]
     Dosage: THREE 500 MG, 1X/DAY:QD
     Route: 048
  2. DAYTRANA [Suspect]
     Dosage: 20 MG, 1X/DAY:QD
     Route: 062
     Dates: start: 20100831

REACTIONS (9)
  - SOMNOLENCE [None]
  - DRUG INEFFECTIVE [None]
  - OFF LABEL USE [None]
  - DELUSION [None]
  - MOOD ALTERED [None]
  - INAPPROPRIATE SCHEDULE OF DRUG ADMINISTRATION [None]
  - WRONG TECHNIQUE IN DRUG USAGE PROCESS [None]
  - OBSESSIVE-COMPULSIVE DISORDER [None]
  - INCORRECT DRUG ADMINISTRATION DURATION [None]
